FAERS Safety Report 9378850 (Version 2)
Quarter: 2013Q3

REPORT INFORMATION
  Report Type: Spontaneous
  Country: US (occurrence: US)
  Receive Date: 20130702
  Receipt Date: 20130710
  Transmission Date: 20140515
  Serious: No
  Sender: FDA-Public Use
  Company Number: US-PFIZER INC-2013193526

PATIENT
  Age: 64 Year
  Sex: Female
  Weight: 77.1 kg

DRUGS (5)
  1. ADVIL PM [Suspect]
     Indication: FIBROMYALGIA
     Dosage: TWO ^CAPLETS^ OF 200 MG, DAILY
     Route: 048
     Dates: start: 20130625
  2. ADVIL PM [Suspect]
     Indication: PAIN
  3. ADVIL PM [Suspect]
     Indication: INSOMNIA
  4. ADVIL PM [Suspect]
     Indication: FATIGUE
  5. SYNTHROID [Concomitant]
     Indication: THYROID DISORDER
     Dosage: 0.088 MG, DAILY

REACTIONS (1)
  - Restless legs syndrome [Recovered/Resolved]
